FAERS Safety Report 5290544-5 (Version None)
Quarter: 2007Q2

REPORT INFORMATION
  Report Type: 
  Country: None (occurrence: None)
  Receive Date: 20070405
  Receipt Date: 20070405
  Transmission Date: 20071010
  Serious: Yes (Hospitalization)
  Sender: FDA-Public Use
  Company Number: None

PATIENT
  Sex: Female
  Weight: 59.7 kg

DRUGS (2)
  1. CARBOPLATIN [Suspect]
     Dosage: 772 MG
  2. TAXOL [Suspect]
     Dosage: 292 MG

REACTIONS (4)
  - DEHYDRATION [None]
  - ELECTROLYTE IMBALANCE [None]
  - NAUSEA [None]
  - VOMITING [None]
